FAERS Safety Report 22398073 (Version 2)
Quarter: 2023Q2

REPORT INFORMATION
  Report Type: Spontaneous
  Country: PT (occurrence: PT)
  Receive Date: 20230602
  Receipt Date: 20230605
  Transmission Date: 20230721
  Serious: Yes (Other)
  Sender: FDA-Public Use
  Company Number: PT-ABBVIE-5186547

PATIENT
  Age: 79 Year
  Sex: Female

DRUGS (3)
  1. CARBIDOPA\LEVODOPA [Suspect]
     Active Substance: CARBIDOPA\LEVODOPA
     Indication: Parkinson^s disease
     Route: 065
  2. CARBIDOPA\LEVODOPA [Suspect]
     Active Substance: CARBIDOPA\LEVODOPA
  3. RIVAROXABAN [Concomitant]
     Active Substance: RIVAROXABAN
     Indication: Hypocoagulable state

REACTIONS (1)
  - Pseudophaeochromocytoma [Recovered/Resolved]
